FAERS Safety Report 21979016 (Version 1)
Quarter: 2023Q1

REPORT INFORMATION
  Report Type: Spontaneous
  Country: US (occurrence: US)
  Receive Date: 20230210
  Receipt Date: 20230210
  Transmission Date: 20230418
  Serious: Yes (Disabling)
  Sender: FDA-Public Use
  Company Number: US-PFIZER INC-202300059852

PATIENT
  Age: 71 Year
  Sex: Male

DRUGS (8)
  1. PAXLOVID [Suspect]
     Active Substance: NIRMATRELVIR\RITONAVIR
     Indication: COVID-19 treatment
     Dosage: UNK
     Route: 048
     Dates: start: 20230128, end: 20230201
  2. AMLODIPINE [Concomitant]
     Active Substance: AMLODIPINE BESYLATE
     Dosage: AMLODIPINE 10
     Route: 048
     Dates: start: 20220901
  3. TAMSULOSIN [Concomitant]
     Active Substance: TAMSULOSIN
     Dosage: TAMSULOSIN 0.4
     Route: 048
     Dates: start: 20201201
  4. TELMISARTAN [Concomitant]
     Active Substance: TELMISARTAN
     Dosage: TELMISARTAN 80
     Route: 048
     Dates: start: 20220901
  5. PREGABALIN [Concomitant]
     Active Substance: PREGABALIN
     Dosage: PREGABALIN 100
     Route: 048
     Dates: start: 20190501
  6. REPATHA [Concomitant]
     Active Substance: EVOLOCUMAB
     Dosage: UNK
     Route: 058
     Dates: start: 20220101
  7. METOPROLOL [Concomitant]
     Active Substance: METOPROLOL
     Dosage: UNK
     Route: 048
     Dates: start: 20200101
  8. SYNTHROID [Concomitant]
     Active Substance: LEVOTHYROXINE SODIUM
     Dosage: 10 UG, 1X/DAY
     Dates: start: 20120711, end: 20230101

REACTIONS (2)
  - COVID-19 [Recovering/Resolving]
  - Disease recurrence [Recovering/Resolving]

NARRATIVE: CASE EVENT DATE: 20230207
